FAERS Safety Report 7669824-1 (Version None)
Quarter: 2011Q3

REPORT INFORMATION
  Report Type: 
  Country: None (occurrence: None)
  Receive Date: 20110803
  Receipt Date: 20110726
  Transmission Date: 20111222
  Serious: Yes (Death)
  Sender: FDA-Public Use
  Company Number: JPI-P-016042

PATIENT
  Age: 70 Year
  Sex: Male

DRUGS (2)
  1. XYREM [Suspect]
     Indication: INSOMNIA
     Dosage: 4.5 GM (2.25 GM, 2 IN 1 D, ORAL; 7.5 GM (3.75 MG, 2 IN 1 D), ORAL
     Route: 048
     Dates: start: 20110310, end: 20110710
  2. XYREM [Suspect]
     Indication: INSOMNIA
     Dosage: 4.5 GM (2.25 GM, 2 IN 1 D, ORAL; 7.5 GM (3.75 MG, 2 IN 1 D), ORAL
     Route: 048
     Dates: start: 20110207, end: 20110101

REACTIONS (1)
  - PULMONARY EMBOLISM [None]
